FAERS Safety Report 14572695 (Version 5)
Quarter: 2018Q3

REPORT INFORMATION
  Report Type: Report from Study
  Country: ES (occurrence: ES)
  Receive Date: 20180226
  Receipt Date: 20180706
  Transmission Date: 20181010
  Serious: Yes (Hospitalization)
  Sender: FDA-Public Use
  Company Number: ES-ROCHE-2074923

PATIENT
  Age: 81 Year
  Sex: Female
  Weight: 71 kg

DRUGS (12)
  1. MONOPROST [Concomitant]
     Active Substance: LATANOPROST
     Route: 065
     Dates: start: 20020621
  2. CALCIUM DOBESILATE [Concomitant]
     Active Substance: CALCIUM DOBESILATE
     Route: 065
     Dates: start: 20030429
  3. CLEXANE [Concomitant]
     Active Substance: ENOXAPARIN SODIUM
     Route: 065
     Dates: start: 20180201, end: 20180203
  4. NATECAL D [Concomitant]
     Active Substance: CALCIUM CARBONATE\CHOLECALCIFEROL
     Route: 065
     Dates: start: 20030429
  5. OMEPRAZOL [Concomitant]
     Active Substance: OMEPRAZOLE
     Route: 065
     Dates: start: 2011
  6. KYTRIL [Concomitant]
     Active Substance: GRANISETRON HYDROCHLORIDE
     Route: 065
     Dates: start: 20180226
  7. VENETOCLAX. [Suspect]
     Active Substance: VENETOCLAX
     Indication: DIFFUSE LARGE B-CELL LYMPHOMA
     Dosage: NEXT RECENT DOSE: 02/FEB/2018, AT 08:35 400 MG, CONTINUOUSLY FOR 21 DAYS.?DATE OF MOST RECENT DOSE:
     Route: 048
     Dates: start: 20180201
  8. FLUTICASONE/SALMETEROL [Concomitant]
     Active Substance: FLUTICASONE PROPIONATE\SALMETEROL XINAFOATE
     Route: 065
     Dates: start: 20030129
  9. RO 6870810 (BET INHIBITOR) [Suspect]
     Active Substance: RO-6870810
     Indication: DIFFUSE LARGE B-CELL LYMPHOMA
     Dosage: MOST RECENT DOSE: 01/FEB/2018, 0.45 MG/KG, AT 08:00?MOST RECENT DOSE: 08/FEB/2018, 0.45 MG/KG AT 09:
     Route: 058
     Dates: start: 20180201
  10. SINTROM [Concomitant]
     Active Substance: ACENOCOUMAROL
     Route: 065
     Dates: start: 20180201
  11. ORFIDAL [Concomitant]
     Active Substance: LORAZEPAM
     Route: 065
     Dates: start: 2000
  12. BIODRAMINA [Concomitant]
     Route: 065
     Dates: start: 20180226

REACTIONS (2)
  - Vertigo [Recovered/Resolved]
  - Influenza [Recovered/Resolved]

NARRATIVE: CASE EVENT DATE: 20180204
